FAERS Safety Report 4906168-2 (Version None)
Quarter: 2006Q1

REPORT INFORMATION
  Report Type: 
  Country: None (occurrence: None)
  Receive Date: 20060207
  Receipt Date: 20060125
  Transmission Date: 20060701
  Serious: Yes (Life-Threatening, Hospitalization)
  Sender: FDA-Public Use
  Company Number: 2006013785

PATIENT
  Age: 56 Year
  Sex: Female

DRUGS (5)
  1. ZITHROMAX [Suspect]
     Indication: UPPER RESPIRATORY TRACT INFECTION
     Dosage: 500 MG, ORAL
     Route: 048
     Dates: start: 19950910, end: 20050901
  2. METOPROLOL (MEROPROLOL) [Concomitant]
  3. JODID (POTASSIUM IODIDE) [Concomitant]
  4. RAMIPRIL [Concomitant]
  5. SIMVASTATIN [Concomitant]

REACTIONS (3)
  - FALL [None]
  - RESUSCITATION [None]
  - VENTRICULAR FIBRILLATION [None]
